FAERS Safety Report 8264605-2 (Version None)
Quarter: 2012Q2

REPORT INFORMATION
  Report Type: 
  Country: None (occurrence: None)
  Receive Date: 20120403
  Receipt Date: 20120328
  Transmission Date: 20120825
  Serious: Yes (Hospitalization, Disabling, Other)
  Sender: FDA-Public Use
  Company Number: 2011MA001493

PATIENT
  Age: 72 Year
  Sex: Female
  Weight: 111.1313 kg

DRUGS (38)
  1. ALLOPURINOL [Concomitant]
  2. CLOPIDOGREL [Concomitant]
  3. LIPITOR [Concomitant]
  4. ASPIRIN [Concomitant]
  5. BACID [Concomitant]
  6. CIPRO [Concomitant]
  7. FAMOTIDINE [Concomitant]
  8. METFORMIN HCL [Concomitant]
  9. NAPROXEN [Concomitant]
  10. NITROGLYCERIN [Concomitant]
  11. OXYCODONE HCL [Concomitant]
  12. SEROQUEL [Concomitant]
  13. ZETIA [Concomitant]
  14. INSULIN [Concomitant]
  15. RELAFEN [Concomitant]
  16. METOCLOPRAMIDE [Suspect]
     Indication: NAUSEA
     Dosage: 10 MG;BID;PO
     Route: 048
     Dates: start: 20050101, end: 20090617
  17. METOCLOPRAMIDE [Suspect]
     Indication: GASTRIC DISORDER
     Dosage: 10 MG;BID;PO
     Route: 048
     Dates: start: 20050101, end: 20090617
  18. ALTACE [Concomitant]
  19. FUROSEMIDE [Concomitant]
  20. SYMMETREL [Concomitant]
  21. VALIUM [Concomitant]
  22. DIGOXIN [Concomitant]
  23. DUONEB [Concomitant]
  24. ISOSORBIDE MONONITRATE [Concomitant]
  25. TRIAMTERENE AND HYDROCHLOROTHIAZIDE [Concomitant]
  26. BYETTA [Concomitant]
  27. LEVOTHYROXINE SODIUM [Concomitant]
  28. APIDRA [Concomitant]
  29. BUPROPION HCL [Concomitant]
  30. CILOXAN [Concomitant]
  31. COMBIVENT [Concomitant]
  32. METOPROLOL TARTRATE [Concomitant]
  33. SENOKOT [Concomitant]
  34. BENZONATATE [Concomitant]
  35. DEPAKOTE ER [Concomitant]
  36. EFFEXOR XR [Concomitant]
  37. GLIMEPIRIDE [Concomitant]
  38. GLUCAGON [Concomitant]

REACTIONS (57)
  - DYSPNOEA EXERTIONAL [None]
  - RESTING TREMOR [None]
  - BLOOD UREA INCREASED [None]
  - EXTRAPYRAMIDAL DISORDER [None]
  - ECONOMIC PROBLEM [None]
  - EATING DISORDER [None]
  - CARDIOACTIVE DRUG LEVEL INCREASED [None]
  - HALLUCINATION, VISUAL [None]
  - RENAL FAILURE [None]
  - COGNITIVE DISORDER [None]
  - FATIGUE [None]
  - ASTHENIA [None]
  - DECREASED INTEREST [None]
  - ACTIVITIES OF DAILY LIVING IMPAIRED [None]
  - CATATONIA [None]
  - IRRITABILITY [None]
  - HAEMORRHAGIC ANAEMIA [None]
  - SPINAL COLUMN STENOSIS [None]
  - MUSCULAR WEAKNESS [None]
  - OEDEMA PERIPHERAL [None]
  - ANXIETY [None]
  - HYPOGLYCAEMIA [None]
  - DELIRIUM [None]
  - CHRONIC OBSTRUCTIVE PULMONARY DISEASE [None]
  - MENTAL STATUS CHANGES [None]
  - DEPRESSION [None]
  - HYPERSOMNIA [None]
  - OBSESSIVE THOUGHTS [None]
  - PSYCHOTIC DISORDER [None]
  - SUICIDAL IDEATION [None]
  - DEATH OF RELATIVE [None]
  - INSOMNIA [None]
  - DRUG WITHDRAWAL SYNDROME [None]
  - FALL [None]
  - AGITATION [None]
  - ANAEMIA [None]
  - OCCULT BLOOD [None]
  - AMNESIA [None]
  - EMOTIONAL DISORDER [None]
  - IMPAIRED SELF-CARE [None]
  - DISTURBANCE IN ATTENTION [None]
  - BLOOD GLUCOSE INCREASED [None]
  - MAJOR DEPRESSION [None]
  - HYDROPHOBIA [None]
  - FEAR [None]
  - BLOOD GLUCOSE DECREASED [None]
  - DYSKINESIA [None]
  - CONVULSION [None]
  - ELECTROENCEPHALOGRAM ABNORMAL [None]
  - TARDIVE DYSKINESIA [None]
  - STRESS [None]
  - COORDINATION ABNORMAL [None]
  - JUDGEMENT IMPAIRED [None]
  - THINKING ABNORMAL [None]
  - OCULAR HYPERAEMIA [None]
  - HYPOTHYROIDISM [None]
  - CONFUSIONAL STATE [None]
